FAERS Safety Report 13098366 (Version 3)
Quarter: 2017Q1

REPORT INFORMATION
  Report Type: Report from Study
  Country: BR (occurrence: BR)
  Receive Date: 20170109
  Receipt Date: 20170228
  Transmission Date: 20170428
  Serious: No
  Sender: FDA-Public Use
  Company Number: PHHY2017BR001723

PATIENT
  Sex: Female
  Weight: 86 kg

DRUGS (6)
  1. MONTELAIR [Concomitant]
     Active Substance: MONTELUKAST SODIUM
     Indication: PRODUCT USED FOR UNKNOWN INDICATION
     Route: 065
  2. ONBREZ BREEZHALER [Suspect]
     Active Substance: INDACATEROL
     Indication: PRODUCT USED FOR UNKNOWN INDICATION
     Route: 065
  3. GALVUS [Suspect]
     Active Substance: VILDAGLIPTIN
     Indication: DIABETES MELLITUS
     Route: 065
  4. FORASEQ [Suspect]
     Active Substance: BUDESONIDE\FORMOTEROL FUMARATE
     Indication: ASTHMA
     Dosage: 1 DF (BUDESONIDE FORMOTEROL 400 MCG, FUMARATE 12 MCG), BID
     Route: 055
  5. FORASEQ [Suspect]
     Active Substance: BUDESONIDE\FORMOTEROL FUMARATE
     Indication: FATIGUE
  6. RELVAR [Concomitant]
     Active Substance: FLUTICASONE FUROATE\VILANTEROL TRIFENATATE
     Indication: PRODUCT USED FOR UNKNOWN INDICATION
     Route: 065

REACTIONS (24)
  - Cough [Unknown]
  - Insomnia [Unknown]
  - Anosmia [Unknown]
  - Malaise [Unknown]
  - Mite allergy [Unknown]
  - Increased bronchial secretion [Unknown]
  - Concomitant disease aggravated [Unknown]
  - Sinusitis [Unknown]
  - Bronchospasm [Unknown]
  - Fatigue [Unknown]
  - Dyspnoea [Unknown]
  - Oropharyngeal discomfort [Unknown]
  - Respiratory disorder [Unknown]
  - Dust allergy [Unknown]
  - Product use issue [Unknown]
  - Memory impairment [Unknown]
  - Blood glucose increased [Unknown]
  - Throat irritation [Unknown]
  - Mycotic allergy [Unknown]
  - Asthma [Unknown]
  - Bronchial disorder [Unknown]
  - Rhinitis allergic [Unknown]
  - Alveolitis allergic [Unknown]
  - Hypersensitivity [Unknown]
